FAERS Safety Report 5890803-9 (Version None)
Quarter: 2008Q3

REPORT INFORMATION
  Report Type: 
  Country: None (occurrence: None)
  Receive Date: 20080918
  Receipt Date: 20080830
  Transmission Date: 20090109
  Serious: Yes (Other)
  Sender: FDA-Public Use
  Company Number: ENT 2008-0087

PATIENT
  Age: 86 Year
  Sex: Male

DRUGS (5)
  1. COMTAN [Suspect]
     Indication: PARKINSON'S DISEASE
     Dosage: 300,0000 MG (100 MG,3 IN 1 D)
     Route: 048
     Dates: start: 20080403, end: 20080515
  2. MADOPAR [Concomitant]
  3. SYMMETREL [Concomitant]
  4. AMOBAN [Concomitant]
  5. DOPS [Concomitant]

REACTIONS (4)
  - CONDITION AGGRAVATED [None]
  - HALLUCINATION [None]
  - PARKINSON'S DISEASE [None]
  - SALIVARY HYPERSECRETION [None]
